FAERS Safety Report 17399082 (Version 2)
Quarter: 2020Q2

REPORT INFORMATION
  Report Type: Spontaneous
  Country: EC (occurrence: EC)
  Receive Date: 20200210
  Receipt Date: 20200427
  Transmission Date: 20200713
  Serious: Yes (Death, Other)
  Sender: FDA-Public Use
  Company Number: EC-AMGEN-ECUSP2020020638

PATIENT
  Age: 51 Year
  Sex: Female
  Weight: 38 kg

DRUGS (4)
  1. CARBOPLATIN. [Suspect]
     Active Substance: CARBOPLATIN
     Indication: LIP AND/OR ORAL CAVITY CANCER
     Dosage: UNK
     Route: 065
     Dates: start: 20190614, end: 202001
  2. NEULASTIM [Suspect]
     Active Substance: PEGFILGRASTIM
     Indication: HEAD AND NECK CANCER
     Dosage: 6 MILLIGRAM, CYCLICAL
     Route: 058
     Dates: start: 20190619, end: 20200113
  3. 5-FLUOROURACIL [FLUOROURACIL] [Suspect]
     Active Substance: FLUOROURACIL
     Indication: LIP AND/OR ORAL CAVITY CANCER
     Dosage: UNK
     Route: 065
     Dates: start: 20190614, end: 202001
  4. DOCETAXEL. [Suspect]
     Active Substance: DOCETAXEL
     Indication: LIP AND/OR ORAL CAVITY CANCER
     Dosage: UNK
     Route: 065
     Dates: start: 20190614, end: 202001

REACTIONS (4)
  - Disease progression [Fatal]
  - Product use in unapproved indication [Unknown]
  - Pneumonia [Fatal]
  - Performance status decreased [Fatal]

NARRATIVE: CASE EVENT DATE: 20190619
